FAERS Safety Report 8097755-4 (Version None)
Quarter: 2012Q1

REPORT INFORMATION
  Report Type: 
  Country: None (occurrence: None)
  Receive Date: 20120128
  Receipt Date: 20110718
  Transmission Date: 20120608
  Serious: No
  Sender: FDA-Public Use
  Company Number: US-ABBOTT-11P-163-0839935-00

PATIENT
  Sex: Female
  Weight: 71.278 kg

DRUGS (7)
  1. HUMIRA [Suspect]
     Route: 058
     Dates: start: 20110713
  2. HUMIRA [Suspect]
     Dosage: (80 MG, LOADING DOSE)
     Route: 058
     Dates: start: 20110629, end: 20110629
  3. OMEPRAZOLE [Concomitant]
     Indication: ABDOMINAL PAIN UPPER
     Route: 048
  4. CELEXA [Concomitant]
     Indication: DEPRESSION
     Route: 048
  5. CELEXA [Concomitant]
     Indication: ANXIETY
  6. HUMIRA [Suspect]
     Indication: CROHN'S DISEASE
     Dosage: (160 MG, LOADING DOSE)
     Route: 058
     Dates: start: 20110615, end: 20110615
  7. OMEPRAZOLE [Concomitant]
     Indication: GASTROOESOPHAGEAL REFLUX DISEASE

REACTIONS (1)
  - CONTUSION [None]
